FAERS Safety Report 13520800 (Version 2)
Quarter: 2017Q2

REPORT INFORMATION
  Report Type: Spontaneous
  Country: GB (occurrence: GB)
  Receive Date: 20170508
  Receipt Date: 20170508
  Transmission Date: 20170830
  Serious: Yes (Other)
  Sender: FDA-Public Use
  Company Number: GB-CIPLA LTD.-2017GB08004

PATIENT

DRUGS (4)
  1. LEVETIRACETAM. [Suspect]
     Active Substance: LEVETIRACETAM
     Indication: TEMPORAL LOBE EPILEPSY
     Dosage: 1.5 G, BID
     Route: 065
  2. LAMOTRIGINE. [Interacting]
     Active Substance: LAMOTRIGINE
     Indication: TEMPORAL LOBE EPILEPSY
     Dosage: 125 MG, BID
     Route: 065
  3. AJAMLINE [Interacting]
     Active Substance: AJMALINE
     Indication: TEMPORAL LOBE EPILEPSY
     Dosage: 1 MG/KG, OVER 5 MINUTES WITH CONTINUOUS MONITORING USING 15-LEAD ECG
  4. AJAMLINE [Interacting]
     Active Substance: AJMALINE
     Dosage: 1 MG/KG, OVER 5 MINUTES WITH CONTINUOUS MONITORING USING 15 LEAD ECG (REPEAT)

REACTIONS (2)
  - Brugada syndrome [Unknown]
  - Drug interaction [Unknown]
